FAERS Safety Report 11193235 (Version 1)
Quarter: 2015Q2

REPORT INFORMATION
  Report Type: Spontaneous
  Country: US (occurrence: US)
  Receive Date: 20150616
  Receipt Date: 20150616
  Transmission Date: 20150821
  Serious: No
  Sender: FDA-Public Use
  Company Number: US-TAKEDA-2014MPI002931

PATIENT
  Sex: Female

DRUGS (1)
  1. VELCADE [Suspect]
     Active Substance: BORTEZOMIB
     Indication: PRODUCT USED FOR UNKNOWN INDICATION
     Dosage: 1.6 MG, UNK
     Route: 058
     Dates: start: 201311

REACTIONS (8)
  - Vomiting [Unknown]
  - Hypoaesthesia [Unknown]
  - Pain in extremity [Unknown]
  - Injection site erythema [Unknown]
  - Back pain [Unknown]
  - Diarrhoea [Unknown]
  - Headache [Unknown]
  - Fatigue [Unknown]

NARRATIVE: CASE EVENT DATE: 20141028
